FAERS Safety Report 4741716-7 (Version None)
Quarter: 2005Q3

REPORT INFORMATION
  Report Type: 
  Country: None (occurrence: None)
  Receive Date: 20050808
  Receipt Date: 20050727
  Transmission Date: 20060218
  Serious: Yes (Hospitalization)
  Sender: FDA-Public Use
  Company Number: FR_050506410

PATIENT
  Age: 62 Year
  Sex: Female

DRUGS (1)
  1. EVISTA [Suspect]
     Dosage: 60 MG/1 DAY
     Route: 048
     Dates: start: 20020901, end: 20050501

REACTIONS (3)
  - BEREAVEMENT [None]
  - DEATH OF SPOUSE [None]
  - MYOCARDIAL INFARCTION [None]
